FAERS Safety Report 6702007-8 (Version None)
Quarter: 2010Q2

REPORT INFORMATION
  Report Type: 
  Country: None (occurrence: None)
  Receive Date: 20100429
  Receipt Date: 20100422
  Transmission Date: 20101027
  Serious: Yes (Other)
  Sender: FDA-Public Use
  Company Number: ES-ROCHE-698949

PATIENT
  Sex: Male

DRUGS (1)
  1. XENICAL [Suspect]
     Indication: WEIGHT CONTROL
     Route: 048
     Dates: start: 20091101

REACTIONS (3)
  - ANAL HAEMORRHAGE [None]
  - RASH MACULAR [None]
  - URTICARIA [None]
